FAERS Safety Report 4338720-X (Version None)
Quarter: 2004Q2

REPORT INFORMATION
  Report Type: 
  Country: None (occurrence: None)
  Receive Date: 20040414
  Receipt Date: 20011015
  Transmission Date: 20050107
  Serious: Yes (Other)
  Sender: FDA-Public Use
  Company Number: US-ROCHE-269961

PATIENT
  Age: 16 Month
  Sex: Male
  Weight: 3.2 kg

DRUGS (4)
  1. ACCUTANE [Suspect]
     Indication: DRUG USE FOR UNKNOWN INDICATION
  2. ACCUTANE [Suspect]
     Dates: start: 20010908, end: 20011011
  3. ORTHO TRI-CYCLEN [Concomitant]
  4. SARAFEM [Concomitant]

REACTIONS (6)
  - AUTISM [None]
  - EAR INFECTION [None]
  - HYPERSENSITIVITY [None]
  - MATERNAL DRUGS AFFECTING FOETUS [None]
  - NORMAL NEWBORN [None]
  - SPEECH DISORDER DEVELOPMENTAL [None]
